FAERS Safety Report 25466349 (Version 1)
Quarter: 2025Q2

REPORT INFORMATION
  Report Type: Spontaneous
  Country: CZ (occurrence: CZ)
  Receive Date: 20250623
  Receipt Date: 20250623
  Transmission Date: 20250716
  Serious: Yes (Hospitalization, Other)
  Sender: CELLTRION
  Company Number: CZ-CELLTRION INC.-2025CZ019408

PATIENT

DRUGS (1)
  1. INFLIXIMAB [Suspect]
     Active Substance: INFLIXIMAB
     Indication: Crohn^s disease
     Dosage: 240 MG, EVERY 14 DAYS
     Route: 058

REACTIONS (3)
  - Synovial cyst [Recovered/Resolved]
  - Intentional dose omission [Unknown]
  - Overdose [Unknown]

NARRATIVE: CASE EVENT DATE: 20241010
